FAERS Safety Report 8611965-6 (Version None)
Quarter: 2012Q3

REPORT INFORMATION
  Report Type: 
  Country: None (occurrence: None)
  Receive Date: 20120822
  Receipt Date: 20120813
  Transmission Date: 20120928
  Serious: Yes (Hospitalization)
  Sender: FDA-Public Use
  Company Number: US-GLAXOSMITHKLINE-A0724612A

PATIENT
  Age: 35 Year
  Sex: Male
  Weight: 215.9 kg

DRUGS (8)
  1. VYTORIN [Concomitant]
  2. METFORMIN [Concomitant]
     Dates: start: 20000301
  3. AMARYL [Concomitant]
     Dates: start: 20000101
  4. LIPITOR [Concomitant]
  5. ACTOS [Concomitant]
     Dates: start: 20050301
  6. WELLBUTRIN XL [Concomitant]
  7. AVANDIA [Suspect]
     Indication: TYPE 2 DIABETES MELLITUS
     Dosage: 8MG PER DAY
     Route: 048
     Dates: start: 20020701, end: 20071001
  8. SEROQUEL [Concomitant]

REACTIONS (2)
  - CARDIAC DISORDER [None]
  - PAIN [None]
